FAERS Safety Report 17550235 (Version 1)
Quarter: 2020Q1

REPORT INFORMATION
  Report Type: Spontaneous
  Country: US (occurrence: US)
  Receive Date: 20200317
  Receipt Date: 20200317
  Transmission Date: 20200409
  Serious: Yes (Other)
  Sender: FDA-Public Use
  Company Number: US-PFIZER INC-2020111936

PATIENT
  Age: 64 Year
  Sex: Female

DRUGS (4)
  1. ADRIAMYCIN [Concomitant]
     Active Substance: DOXORUBICIN HYDROCHLORIDE
  2. NEOSAR [Concomitant]
     Active Substance: CYCLOPHOSPHAMIDE
  3. DOXIL [Concomitant]
     Active Substance: DOXORUBICIN HYDROCHLORIDE
  4. DOCETAXEL. [Suspect]
     Active Substance: DOCETAXEL
     Indication: BREAST CANCER FEMALE
     Dosage: UNK, EVERY 3 WEEKS (141-143 MG, EVERY THREE WEEKS, 4 CYCLES)
     Dates: start: 20141022

REACTIONS (9)
  - Depression [Unknown]
  - Hair colour changes [Unknown]
  - Crying [Unknown]
  - Suicidal ideation [Unknown]
  - Madarosis [Unknown]
  - Retinal oedema [Unknown]
  - Alopecia [Unknown]
  - Hair disorder [Unknown]
  - Hair texture abnormal [Unknown]

NARRATIVE: CASE EVENT DATE: 201410
